FAERS Safety Report 9132402 (Version 2)
Quarter: 2013Q2

REPORT INFORMATION
  Report Type: Spontaneous
  Country: FR (occurrence: FR)
  Receive Date: 20130107
  Receipt Date: 20130618
  Transmission Date: 20140414
  Serious: Yes (Death, Hospitalization)
  Sender: FDA-Public Use
  Company Number: FR-GLAXOSMITHKLINE-B0854989A

PATIENT
  Age: 76 Year
  Sex: Male

DRUGS (21)
  1. LAMICTAL [Suspect]
     Indication: EPILEPSY
     Route: 048
     Dates: start: 20120809, end: 20120818
  2. URBANYL [Suspect]
     Indication: EPILEPSY
     Route: 048
     Dates: start: 20120809, end: 20120818
  3. PROPYLTHIOURACIL [Suspect]
     Indication: PRODUCT USED FOR UNKNOWN INDICATION
     Route: 065
     Dates: start: 201206, end: 201208
  4. KIVEXA [Concomitant]
     Route: 065
  5. LASILIX [Concomitant]
     Route: 065
  6. NICOBION [Concomitant]
     Route: 065
  7. COVERSYL [Concomitant]
     Route: 065
  8. ZYLORIC [Concomitant]
     Route: 065
  9. DISCOTRINE [Concomitant]
     Route: 023
  10. CARDENSIEL [Concomitant]
     Route: 065
  11. QUESTRAN [Concomitant]
     Route: 048
  12. DUPHALAC [Concomitant]
     Route: 065
  13. KARDEGIC [Concomitant]
     Route: 048
  14. LIPANTHYL [Concomitant]
     Route: 065
  15. SUSTIVA [Concomitant]
     Route: 065
  16. SPECIAFOLDINE [Concomitant]
     Route: 065
  17. INEXIUM [Concomitant]
     Route: 065
  18. DIFFU K [Concomitant]
     Route: 065
  19. ORGARAN [Concomitant]
     Route: 065
  20. PREVISCAN [Concomitant]
     Route: 065
  21. CORVASAL [Concomitant]
     Route: 065

REACTIONS (18)
  - Agranulocytosis [Fatal]
  - Thrombocytopenia [Fatal]
  - Somnolence [Unknown]
  - Inflammation [Recovered/Resolved]
  - Pyrexia [Recovered/Resolved]
  - Confusional state [Unknown]
  - Disorientation [Unknown]
  - Respiratory distress [Unknown]
  - Tachypnoea [Unknown]
  - Respiration abnormal [Unknown]
  - Rales [Unknown]
  - Hypoxia [Unknown]
  - Metabolic acidosis [Unknown]
  - Blood lactic acid increased [Unknown]
  - Cardiogenic shock [Unknown]
  - Tachyarrhythmia [Unknown]
  - Ventricular tachycardia [Recovered/Resolved]
  - Renal failure acute [Unknown]
